FAERS Safety Report 22603183 (Version 1)
Quarter: 2023Q2

REPORT INFORMATION
  Report Type: Report from Study
  Country: CA (occurrence: CA)
  Receive Date: 20230615
  Receipt Date: 20230615
  Transmission Date: 20230721
  Serious: Yes (Other)
  Sender: FDA-Public Use
  Company Number: CA-CELLTRION INC.-2022CA007172

PATIENT

DRUGS (5)
  1. TRUXIMA [Suspect]
     Active Substance: RITUXIMAB-ABBS
     Indication: Rheumatoid arthritis
     Dosage: 1000 MILLIGRAM (INFUSION#1)
     Route: 042
     Dates: start: 20220516
  2. TRUXIMA [Suspect]
     Active Substance: RITUXIMAB-ABBS
     Dosage: 1000 MILLIGRAM
     Route: 042
     Dates: start: 20220516
  3. TRUXIMA [Suspect]
     Active Substance: RITUXIMAB-ABBS
     Dosage: 1000 MILLIGRAM (INFUSION#3)
     Route: 042
     Dates: start: 20220516
  4. ACETAMINOPHEN [Concomitant]
     Active Substance: ACETAMINOPHEN
     Indication: Premedication
     Dosage: 650 MILLIGRAM, 30 MINUTES PRIOR TO THE INFUSION
     Route: 048
  5. DIPHENHYDRAMINE [Concomitant]
     Active Substance: DIPHENHYDRAMINE
     Indication: Premedication
     Dosage: 50 MILLIGRAM, 30 MINUTES PRIOR TO THE INFUSION
     Route: 048

REACTIONS (4)
  - Urticaria [Recovered/Resolved]
  - Pruritus [Recovered/Resolved]
  - Arthritis [Not Recovered/Not Resolved]
  - Erythema [Recovered/Resolved]

NARRATIVE: CASE EVENT DATE: 20220516
